FAERS Safety Report 19740676 (Version 1)
Quarter: 2021Q3

REPORT INFORMATION
  Report Type: Spontaneous
  Country: US (occurrence: US)
  Receive Date: 20210824
  Receipt Date: 20210824
  Transmission Date: 20211014
  Serious: Yes (Death, Life-Threatening, Other)
  Sender: FDA-Public Use
  Company Number: US-AMGEN-USASP2021126464

PATIENT

DRUGS (1)
  1. FILGRASTIM [Suspect]
     Active Substance: FILGRASTIM
     Indication: HAEMATOPOIETIC STEM CELL MOBILISATION
     Dosage: 5 MICROGRAM, QD
     Route: 065

REACTIONS (11)
  - Engraft failure [Unknown]
  - Nausea [Unknown]
  - Chronic graft versus host disease [Fatal]
  - BK virus infection [Unknown]
  - Cytomegalovirus infection reactivation [Unknown]
  - Diarrhoea [Unknown]
  - Acute graft versus host disease [Fatal]
  - Vomiting [Unknown]
  - Death [Fatal]
  - Cytokine release syndrome [Unknown]
  - Mucosal inflammation [Unknown]
